FAERS Safety Report 7049954-8 (Version None)
Quarter: 2010Q4

REPORT INFORMATION
  Report Type: 
  Country: None (occurrence: None)
  Receive Date: 20101013
  Receipt Date: 20101005
  Transmission Date: 20110411
  Serious: Yes (Other)
  Sender: FDA-Public Use
  Company Number: 1000016644

PATIENT
  Age: 68 Year
  Sex: Male
  Weight: 113.4 kg

DRUGS (5)
  1. LEXAPRO [Suspect]
     Indication: DEPRESSION
     Dosage: 20 MG (20 MG,1 IN 1 D),ORAL
     Route: 048
     Dates: start: 20090101
  2. VIAGRA [Suspect]
     Indication: ERECTILE DYSFUNCTION
     Dosage: (50 MG,AS REQUIRED),ORAL
     Route: 048
     Dates: start: 20080101
  3. SIMVASTATIN [Concomitant]
  4. PLAVIX (CLOPIDOGREL) (CLOPIDOGREL) [Concomitant]
  5. LISINOPRIL [Concomitant]

REACTIONS (3)
  - DRUG INTERACTION [None]
  - HYPOTENSION [None]
  - SYNCOPE [None]
